FAERS Safety Report 5938118-4 (Version None)
Quarter: 2008Q4

REPORT INFORMATION
  Report Type: 
  Country: None (occurrence: None)
  Receive Date: 20081031
  Receipt Date: 20081021
  Transmission Date: 20090506
  Serious: Yes (Disabling, Other)
  Sender: FDA-Public Use
  Company Number: PT-PFIZER INC-2008088651

PATIENT
  Age: 26 Year
  Sex: Female

DRUGS (2)
  1. ZITHROMAX [Suspect]
     Route: 048
     Dates: start: 20081012, end: 20081012
  2. ACETAMINOPHEN [Concomitant]

REACTIONS (7)
  - ASTHENIA [None]
  - DIZZINESS [None]
  - FATIGUE [None]
  - NAUSEA [None]
  - PALLOR [None]
  - SYNCOPE [None]
  - VOMITING [None]
